FAERS Safety Report 26018820 (Version 1)
Quarter: 2025Q4

REPORT INFORMATION
  Report Type: Spontaneous
  Country: EU (occurrence: EU)
  Receive Date: 20251110
  Receipt Date: 20251110
  Transmission Date: 20260118
  Serious: Yes (Hospitalization, Other)
  Sender: Kenvue
  Company Number: None

PATIENT

DRUGS (1)
  1. ACETAMINOPHEN [Suspect]
     Active Substance: ACETAMINOPHEN
     Indication: Product used for unknown indication
     Dosage: SINGLE INGESTION OF 10 TABLETS OF PARACETAMOL 1 G 2 DAYS BEFORE
     Route: 048

REACTIONS (4)
  - Acute kidney injury [Recovered/Resolved]
  - Renal tubular necrosis [Recovered/Resolved]
  - Suicide attempt [Recovered/Resolved]
  - Intentional overdose [Recovered/Resolved]
